FAERS Safety Report 4429802-2 (Version None)
Quarter: 2004Q3

REPORT INFORMATION
  Report Type: 
  Country: None (occurrence: None)
  Receive Date: 20040818
  Receipt Date: 20040818
  Transmission Date: 20050211
  Serious: Yes (Life-Threatening, Hospitalization)
  Sender: FDA-Public Use
  Company Number: None

PATIENT
  Age: 63 Year
  Sex: Female

DRUGS (7)
  1. TORADOL [Suspect]
     Indication: HEADACHE
     Dosage: 30 MG ONCE INTRAVENOUS
     Route: 042
     Dates: start: 20041224, end: 20041224
  2. DEXAMETHASONE [Concomitant]
  3. PREMARIN [Concomitant]
  4. PREVACID [Concomitant]
  5. REGLAN [Concomitant]
  6. PREDNISONE [Concomitant]
  7. GUAIFENEX [Concomitant]

REACTIONS (1)
  - ANAPHYLACTIC REACTION [None]
